FAERS Safety Report 7131874-1 (Version None)
Quarter: 2010Q4

REPORT INFORMATION
  Report Type: 
  Country: None (occurrence: None)
  Receive Date: 20101202
  Receipt Date: 20081208
  Transmission Date: 20110411
  Serious: No
  Sender: FDA-Public Use
  Company Number: 2008BI033202

PATIENT
  Age: 36 Year
  Sex: Male

DRUGS (1)
  1. TYSABRI [Suspect]
     Indication: MULTIPLE SCLEROSIS
     Route: 042
     Dates: start: 20071012

REACTIONS (5)
  - AGRAPHIA [None]
  - FATIGUE [None]
  - HEADACHE [None]
  - HEMICEPHALALGIA [None]
  - MYALGIA [None]
